FAERS Safety Report 10241392 (Version 1)
Quarter: 2014Q2

REPORT INFORMATION
  Report Type: Spontaneous
  Country: CA (occurrence: CA)
  Receive Date: 20140617
  Receipt Date: 20140617
  Transmission Date: 20141212
  Serious: Yes (Death, Other)
  Sender: FDA-Public Use
  Company Number: CA-PAR PHARMACEUTICAL, INC-2014SCPR009182

PATIENT
  Sex: 0

DRUGS (1)
  1. PITOCIN [Suspect]
     Indication: PRODUCT USED FOR UNKNOWN INDICATION
     Dosage: UNK, UNKNOWN
     Route: 065

REACTIONS (9)
  - Medication error [Unknown]
  - Death [Fatal]
  - Adverse event [Unknown]
  - Maternal exposure during delivery [Unknown]
  - Wrong drug administered [None]
  - Incorrect dose administered [None]
  - Incorrect route of drug administration [None]
  - Wrong technique in drug usage process [None]
  - Incorrect product storage [None]
